FAERS Safety Report 10068050 (Version 2)
Quarter: 2014Q2

REPORT INFORMATION
  Report Type: Spontaneous
  Country: US (occurrence: US)
  Receive Date: 20140409
  Receipt Date: 20140418
  Transmission Date: 20141212
  Serious: Yes (Death)
  Sender: FDA-Public Use
  Company Number: US-OTSUKA-US-2014-10655

PATIENT
  Age: 65 Year
  Sex: Female

DRUGS (5)
  1. ABILIFY MAINTENA [Suspect]
     Indication: SCHIZOPHRENIA
     Dosage: 400 MG MILLIGRAM(S), QM
     Route: 030
     Dates: start: 20131001
  2. ABILIFY MAINTENA [Suspect]
     Dosage: 400 MG MILLIGRAM(S), QM
     Route: 030
     Dates: start: 20131105
  3. ABILIFY MAINTENA [Suspect]
     Dosage: 400 MG MILLIGRAM(S), QM
     Route: 030
     Dates: start: 20131203
  4. ABILIFY MAINTENA [Suspect]
     Dosage: 400 MG MILLIGRAM(S), QM
     Route: 030
     Dates: start: 20140106
  5. ABILIFY MAINTENA [Suspect]
     Dosage: 400 MG MILLIGRAM(S), QM
     Route: 030
     Dates: start: 20140204

REACTIONS (2)
  - Death [Fatal]
  - Psychiatric symptom [Unknown]
